FAERS Safety Report 6381934-8 (Version None)
Quarter: 2009Q3

REPORT INFORMATION
  Report Type: 
  Country: None (occurrence: None)
  Receive Date: 20090930
  Receipt Date: 20090925
  Transmission Date: 20100115
  Serious: Yes (Hospitalization)
  Sender: FDA-Public Use
  Company Number: US-ROCHE-650630

PATIENT
  Age: 50 Year
  Sex: Female

DRUGS (1)
  1. BONIVA [Suspect]
     Indication: DRUG USE FOR UNKNOWN INDICATION
     Dosage: THE PATIENT WAS ON BONIVA FOR THREE AND A HALF YEARS
     Route: 065
     Dates: start: 20060101

REACTIONS (2)
  - BONE DISORDER [None]
  - FEMUR FRACTURE [None]
